FAERS Safety Report 13765403 (Version 2)
Quarter: 2017Q3

REPORT INFORMATION
  Report Type: Spontaneous
  Country: DE (occurrence: DE)
  Receive Date: 20170718
  Receipt Date: 20170718
  Transmission Date: 20171127
  Serious: Yes (Hospitalization)
  Sender: FDA-Public Use
  Company Number: DE-TEVA-785810GER

PATIENT
  Sex: Female

DRUGS (1)
  1. OXALIPLATIN. [Suspect]
     Active Substance: OXALIPLATIN
     Indication: CHEMOTHERAPY
     Dates: start: 20170424, end: 20170609

REACTIONS (2)
  - Mental disorder [Unknown]
  - Diet refusal [Unknown]

NARRATIVE: CASE EVENT DATE: 20170619
